FAERS Safety Report 8625043-3 (Version None)
Quarter: 2012Q3

REPORT INFORMATION
  Report Type: 
  Country: None (occurrence: None)
  Receive Date: 20120827
  Receipt Date: 20120817
  Transmission Date: 20120928
  Serious: Yes (Other)
  Sender: FDA-Public Use
  Company Number: US-ASTRAZENECA-2012SE60028

PATIENT
  Age: 71 Year
  Sex: Male
  Weight: 90.7 kg

DRUGS (8)
  1. NEXIUM [Suspect]
     Indication: GASTROOESOPHAGEAL REFLUX DISEASE
     Route: 048
     Dates: start: 20070101, end: 20110101
  2. NEXIUM [Suspect]
     Route: 048
     Dates: start: 20110101
  3. ALLOPURINOL [Concomitant]
     Indication: GOUT
     Route: 048
     Dates: start: 20100101
  4. INDOCIN [Concomitant]
     Indication: GOUT
     Dosage: PRN
     Route: 048
     Dates: start: 20020101
  5. NEXIUM [Suspect]
     Indication: DYSPEPSIA
     Route: 048
     Dates: start: 20070101, end: 20110101
  6. NEXIUM [Suspect]
     Route: 048
     Dates: start: 20110101
  7. LIPITOR [Concomitant]
     Indication: BLOOD CHOLESTEROL
     Route: 048
     Dates: start: 20070101
  8. FLOMAX [Concomitant]
     Indication: PROSTATE CANCER
     Route: 048
     Dates: start: 20110101

REACTIONS (4)
  - PROSTATE CANCER [None]
  - GOUT [None]
  - OFF LABEL USE [None]
  - DRUG INEFFECTIVE [None]
